FAERS Safety Report 16992250 (Version 1)
Quarter: 2019Q4

REPORT INFORMATION
  Report Type: Report from Study
  Country: US (occurrence: US)
  Receive Date: 20191105
  Receipt Date: 20191105
  Transmission Date: 20200122
  Serious: Yes (Hospitalization, Other)
  Sender: FDA-Public Use
  Company Number: US-TEVA-726943USA

PATIENT
  Age: 61 Year
  Sex: Male
  Weight: 105.33 kg

DRUGS (14)
  1. PREDNISONE. [Suspect]
     Active Substance: PREDNISONE
     Indication: ASTHMA
     Dosage: SOMETIMES OVER 60 MG PER DAY, FOR OVER 10 YEARS, AND STILL TAKES 20 MG AS NEEDED TODAY.
     Route: 065
  2. DIVALPROEX [Concomitant]
     Active Substance: DIVALPROEX SODIUM
     Indication: ANGER
  3. OMEPRAZOLE. [Concomitant]
     Active Substance: OMEPRAZOLE
  4. JANUVIA [Concomitant]
     Active Substance: SITAGLIPTIN PHOSPHATE
  5. CINQAIR [Suspect]
     Active Substance: RESLIZUMAB
     Indication: ASTHMA
     Route: 042
     Dates: start: 201611, end: 201705
  6. ELIQUIS [Suspect]
     Active Substance: APIXABAN
     Indication: PROPHYLAXIS
     Route: 065
  7. LISINOPRIL. [Concomitant]
     Active Substance: LISINOPRIL
     Indication: PROPHYLAXIS
     Dates: start: 201510, end: 201612
  8. DILTIAZEM. [Concomitant]
     Active Substance: DILTIAZEM
     Indication: PROPHYLAXIS
     Dates: start: 201510
  9. BENZONATATE. [Concomitant]
     Active Substance: BENZONATATE
     Indication: COUGH
  10. HUMALOG [Concomitant]
     Active Substance: INSULIN LISPRO
     Indication: TYPE 2 DIABETES MELLITUS
  11. LIPITOR [Concomitant]
     Active Substance: ATORVASTATIN CALCIUM
     Indication: PROPHYLAXIS
     Dates: start: 201510, end: 20170206
  12. LOSARTAN. [Concomitant]
     Active Substance: LOSARTAN
     Indication: PROPHYLAXIS
     Dates: start: 201612, end: 20170206
  13. DEPAKOTE [Concomitant]
     Active Substance: DIVALPROEX SODIUM
  14. BREO ELLIPTA [Concomitant]
     Active Substance: FLUTICASONE FUROATE\VILANTEROL TRIFENATATE

REACTIONS (16)
  - Muscle rupture [Unknown]
  - Soft tissue injury [Recovering/Resolving]
  - Cough [Recovered/Resolved with Sequelae]
  - Musculoskeletal chest pain [Recovered/Resolved with Sequelae]
  - Blood creatine phosphokinase increased [Unknown]
  - Atrial fibrillation [Unknown]
  - Dyspnoea [Unknown]
  - Rib fracture [Unknown]
  - Internal haemorrhage [Recovering/Resolving]
  - Burning sensation [Unknown]
  - Oxygen saturation decreased [Unknown]
  - Pain [Unknown]
  - Rib fracture [Unknown]
  - Contusion [Recovered/Resolved with Sequelae]
  - Viral infection [Recovering/Resolving]
  - Drug ineffective [Unknown]

NARRATIVE: CASE EVENT DATE: 20161101
